FAERS Safety Report 20548023 (Version 1)
Quarter: 2022Q1

REPORT INFORMATION
  Report Type: Spontaneous
  Country: RU (occurrence: RU)
  Receive Date: 20220303
  Receipt Date: 20220303
  Transmission Date: 20220423
  Serious: Yes (Life-Threatening)
  Sender: FDA-Public Use
  Company Number: RU-ABBOTT-2022A-1346250

PATIENT
  Age: 2 Year
  Sex: Female
  Weight: 11 kg

DRUGS (1)
  1. CREON [Suspect]
     Active Substance: PANCRELIPASE AMYLASE\PANCRELIPASE LIPASE\PANCRELIPASE PROTEASE
     Indication: Product used for unknown indication
     Dosage: DAILY DOSE: UNKNOWN; 4500 IU OF LIPASE PER 1G OF FAT 24-26 CAPSULES PER DAY.?10000
     Route: 048
     Dates: start: 20200515, end: 20200518

REACTIONS (6)
  - Anxiety [Unknown]
  - Mucous stools [Unknown]
  - Stool analysis abnormal [Unknown]
  - Vomiting [Unknown]
  - Drug ineffective [Unknown]
  - Diarrhoea [Unknown]
